FAERS Safety Report 9801678 (Version 1)
Quarter: 2014Q1

REPORT INFORMATION
  Report Type: Spontaneous
  Country: FR (occurrence: FR)
  Receive Date: 20140107
  Receipt Date: 20140107
  Transmission Date: 20141002
  Serious: Yes (Hospitalization)
  Sender: FDA-Public Use
  Company Number: PHHY2013FR154505

PATIENT
  Age: 93 Year
  Sex: Female

DRUGS (3)
  1. CLOMIPRAMINE SANDOZ [Suspect]
     Indication: DEPRESSION
     Dosage: 75 MG, QD
     Route: 048
     Dates: start: 20121025, end: 20121107
  2. ANAFRANIL [Concomitant]
     Indication: DEPRESSION
     Dosage: 12.5 MG, QD
     Route: 042
     Dates: start: 20121018, end: 20121019
  3. ANAFRANIL [Concomitant]
     Dosage: 25 MG, QD
     Route: 042
     Dates: start: 20121019, end: 20121024

REACTIONS (1)
  - Hyponatraemia [Recovered/Resolved]
